FAERS Safety Report 6157190-2 (Version None)
Quarter: 2009Q2

REPORT INFORMATION
  Report Type: 
  Country: None (occurrence: None)
  Receive Date: 20090413
  Receipt Date: 20090401
  Transmission Date: 20091009
  Serious: Yes (Death)
  Sender: FDA-Public Use
  Company Number: 2009S1000129

PATIENT
  Age: 84 Year
  Sex: Female

DRUGS (2)
  1. CUBICIN [Suspect]
     Indication: SEPSIS
     Dates: start: 20090220, end: 20090305
  2. AUGMENTIN '125' [Concomitant]

REACTIONS (1)
  - DISSEMINATED INTRAVASCULAR COAGULATION [None]
